FAERS Safety Report 9817709 (Version 1)
Quarter: 2013Q4

REPORT INFORMATION
  Report Type: Spontaneous
  Country: US (occurrence: None)
  Receive Date: 20131223
  Receipt Date: 20131223
  Transmission Date: 20140711
  Serious: No
  Sender: FDA-Public Use
  Company Number: 219307

PATIENT
  Sex: Female

DRUGS (4)
  1. PICATO GEL [Suspect]
     Indication: ACTINIC KERATOSIS
     Route: 061
     Dates: start: 20121001, end: 20121003
  2. REQUIP (ROPINIROLE HYDROCHLORIDE) [Concomitant]
  3. WELLBUTRIN (BUPROPION HYDROCHLORIDE) [Concomitant]
  4. LYRICA (PREGABALIN) [Concomitant]

REACTIONS (4)
  - Erythema [None]
  - Burning sensation [None]
  - Swelling [None]
  - Drug administered at inappropriate site [None]
